FAERS Safety Report 5330034-4 (Version None)
Quarter: 2007Q2

REPORT INFORMATION
  Report Type: 
  Country: None (occurrence: None)
  Receive Date: 20070521
  Receipt Date: 20070514
  Transmission Date: 20071010
  Serious: Yes (Death)
  Sender: FDA-Public Use
  Company Number: JP-ASTRAZENECA-2007AP02699

PATIENT
  Age: 37 Year
  Sex: Female

DRUGS (8)
  1. OMEPRAL [Suspect]
     Route: 048
  2. TS-1 [Suspect]
     Indication: GASTRIC CANCER
     Dosage: FIRST COURSE
     Route: 048
     Dates: start: 20050101
  3. TS-1 [Suspect]
     Dosage: SECOND COURSE
     Route: 048
  4. TS-1 [Suspect]
     Dosage: THIRD COURSE
     Route: 048
     Dates: start: 20060215
  5. TS-1 [Suspect]
     Dosage: FOURTH COURSE
     Route: 048
     Dates: end: 20060415
  6. UKNOWN DRUG [Concomitant]
  7. FOY [Concomitant]
     Indication: DISSEMINATED INTRAVASCULAR COAGULATION
     Route: 041
     Dates: start: 20050101
  8. REBAMIDE [Concomitant]

REACTIONS (1)
  - INTERSTITIAL LUNG DISEASE [None]
